FAERS Safety Report 20636129 (Version 1)
Quarter: 2022Q1

REPORT INFORMATION
  Report Type: Spontaneous
  Country: US (occurrence: US)
  Receive Date: 20220325
  Receipt Date: 20220325
  Transmission Date: 20220423
  Serious: Yes (Other)
  Sender: FDA-Public Use
  Company Number: US-ASTELLAS-2022US010998

PATIENT
  Age: 78 Year
  Sex: Male

DRUGS (2)
  1. MYRBETRIQ [Suspect]
     Active Substance: MIRABEGRON
     Indication: Product used for unknown indication
     Route: 065
     Dates: start: 202203, end: 202203
  2. OXYCODONE [Concomitant]
     Active Substance: OXYCODONE
     Indication: Back pain
     Route: 065

REACTIONS (7)
  - Flushing [Unknown]
  - Constipation [Unknown]
  - Fatigue [Unknown]
  - Dyspnoea [Unknown]
  - Arthralgia [Unknown]
  - Dizziness [Unknown]
  - Back pain [Unknown]

NARRATIVE: CASE EVENT DATE: 20220321
